FAERS Safety Report 9621270 (Version 2)
Quarter: 2013Q4

REPORT INFORMATION
  Report Type: Spontaneous
  Country: US (occurrence: US)
  Receive Date: 20131015
  Receipt Date: 20131111
  Transmission Date: 20140711
  Serious: Yes (Other)
  Sender: FDA-Public Use
  Company Number: US-FRI-1000049965

PATIENT
  Age: 85 Year
  Sex: Female

DRUGS (5)
  1. TUDORZA PRESSAIR [Suspect]
     Indication: CHRONIC OBSTRUCTIVE PULMONARY DISEASE
     Dosage: 800 MCG
     Route: 055
     Dates: start: 201309, end: 201309
  2. SYNTHROID [Concomitant]
  3. HYDROCHLOROTHIAZIDE [Concomitant]
     Dosage: 25 MG
     Route: 048
  4. ASPIRIN [Concomitant]
     Dosage: 162 MG
     Route: 048
  5. OXYGEN [Concomitant]
     Indication: CHRONIC OBSTRUCTIVE PULMONARY DISEASE

REACTIONS (5)
  - VIIth nerve paralysis [Recovered/Resolved]
  - Swelling face [Recovered/Resolved]
  - Local swelling [Recovered/Resolved]
  - Dysuria [Recovered/Resolved]
  - Eye irritation [Recovered/Resolved]
